FAERS Safety Report 10581001 (Version 1)
Quarter: 2014Q4

REPORT INFORMATION
  Report Type: Spontaneous
  Country: US (occurrence: None)
  Receive Date: 20141112
  Receipt Date: 20141112
  Transmission Date: 20150529
  Serious: Yes (Life-Threatening, Other)
  Sender: FDA-Public Use
  Company Number: None

PATIENT
  Age: 23 Year
  Sex: Female
  Weight: 72.58 kg

DRUGS (2)
  1. EFFEXOR XR [Suspect]
     Active Substance: VENLAFAXINE HYDROCHLORIDE
     Indication: ANXIETY
     Dosage: 1 PILL TAKEN BY MOUTH
     Route: 048
  2. EFFEXOR XR [Suspect]
     Active Substance: VENLAFAXINE HYDROCHLORIDE
     Indication: DEPRESSION
     Dosage: 1 PILL TAKEN BY MOUTH
     Route: 048

REACTIONS (21)
  - Suicidal ideation [None]
  - Pain [None]
  - Drug withdrawal syndrome [None]
  - Nausea [None]
  - Drug dependence [None]
  - Emotional disorder [None]
  - Dizziness [None]
  - Gastrointestinal disorder [None]
  - Drug dose omission [None]
  - Migraine [None]
  - Crying [None]
  - Adverse drug reaction [None]
  - Intentional self-injury [None]
  - Chills [None]
  - Paraesthesia [None]
  - Anxiety [None]
  - Discomfort [None]
  - Nightmare [None]
  - Paranoia [None]
  - Fear [None]
  - Cold sweat [None]
